FAERS Safety Report 22945373 (Version 7)
Quarter: 2024Q1

REPORT INFORMATION
  Report Type: Spontaneous
  Country: CL (occurrence: CL)
  Receive Date: 20230914
  Receipt Date: 20240122
  Transmission Date: 20240410
  Serious: Yes (Hospitalization)
  Sender: FDA-Public Use
  Company Number: CL-SA-SAC20230727000755

PATIENT

DRUGS (1)
  1. LARONIDASE [Suspect]
     Active Substance: LARONIDASE
     Indication: Mucopolysaccharidosis I
     Dosage: 3 DF (VIALS), QW
     Route: 042
     Dates: start: 20230202, end: 20230921

REACTIONS (6)
  - Respiratory disorder [Recovering/Resolving]
  - Sleep apnoea syndrome [Recovering/Resolving]
  - Viral infection [Recovering/Resolving]
  - Vomiting [Recovering/Resolving]
  - Diarrhoea [Recovering/Resolving]
  - Pyrexia [Recovering/Resolving]

NARRATIVE: CASE EVENT DATE: 20230101
